FAERS Safety Report 19256298 (Version 1)
Quarter: 2021Q2

REPORT INFORMATION
  Report Type: Report from Study
  Country: US (occurrence: US)
  Receive Date: 20210513
  Receipt Date: 20210513
  Transmission Date: 20210717
  Serious: Yes (Hospitalization)
  Sender: FDA-Public Use
  Company Number: US-BAYER-2021-127988

PATIENT
  Age: 80 Year
  Sex: Male

DRUGS (1)
  1. STIVARGA [Suspect]
     Active Substance: REGORAFENIB
     Indication: PANCREATIC CARCINOMA
     Dosage: 80 MG, QD
     Route: 048
     Dates: start: 20210411, end: 20210419

REACTIONS (7)
  - Feeding disorder [Recovering/Resolving]
  - Nausea [Recovering/Resolving]
  - Abdominal pain [Not Recovered/Not Resolved]
  - Product use in unapproved indication [None]
  - Paracentesis [Recovering/Resolving]
  - Dysphonia [Not Recovered/Not Resolved]
  - Off label use [None]

NARRATIVE: CASE EVENT DATE: 20210411
